FAERS Safety Report 15211712 (Version 1)
Quarter: 2018Q3

REPORT INFORMATION
  Report Type: Spontaneous
  Country: US (occurrence: US)
  Receive Date: 20180702
  Receipt Date: 20180702
  Transmission Date: 20181010
  Serious: Yes (Disabling, Other)
  Sender: FDA-Public Use
  Company Number: None

PATIENT
  Age: 67 Year
  Sex: Male
  Weight: 65.77 kg

DRUGS (1)
  1. FLUTICASONE PROPIONATE NASAL SPRAY [Suspect]
     Active Substance: FLUTICASONE PROPIONATE
     Indication: SINUS CONGESTION
     Dosage: ?          QUANTITY:1 DF DOSAGE FORM;?
     Route: 045
     Dates: start: 20171123

REACTIONS (3)
  - Product contamination physical [None]
  - Epistaxis [None]
  - Nasal mucosal disorder [None]

NARRATIVE: CASE EVENT DATE: 20171123
